FAERS Safety Report 9906279 (Version 2)
Quarter: 2014Q1

REPORT INFORMATION
  Report Type: Spontaneous
  Country: US (occurrence: US)
  Receive Date: 20140218
  Receipt Date: 20140218
  Transmission Date: 20141002
  Serious: No
  Sender: FDA-Public Use
  Company Number: US-GILEAD-2011-0048462

PATIENT
  Age: 42 Year
  Sex: Female

DRUGS (4)
  1. LETAIRIS [Suspect]
     Indication: PRODUCT USED FOR UNKNOWN INDICATION
     Dosage: 10 MG, UNK
     Route: 048
     Dates: start: 20101123
  2. REVATIO [Suspect]
     Dosage: UNK ?G/KG, UNK
  3. REMODULIN [Suspect]
     Indication: CARDIAC SEPTAL DEFECT
     Dosage: 118.8 ?G/KG, UNK
     Dates: start: 20100928
  4. COUMADIN                           /00014802/ [Concomitant]

REACTIONS (2)
  - Disturbance in attention [Unknown]
  - Headache [Unknown]
